FAERS Safety Report 8488545-9 (Version None)
Quarter: 2012Q3

REPORT INFORMATION
  Report Type: 
  Country: None (occurrence: None)
  Receive Date: 20120705
  Receipt Date: 20120622
  Transmission Date: 20120928
  Serious: Yes (Other)
  Sender: FDA-Public Use
  Company Number: JP-PFIZER INC-2012159139

PATIENT
  Sex: Female

DRUGS (1)
  1. LIPITOR [Suspect]
     Dosage: 5MG QOD
     Route: 048

REACTIONS (3)
  - DIZZINESS [None]
  - INTENTIONAL DRUG MISUSE [None]
  - BLOOD PRESSURE DECREASED [None]
